FAERS Safety Report 19844766 (Version 2)
Quarter: 2021Q4

REPORT INFORMATION
  Report Type: Spontaneous
  Country: US (occurrence: US)
  Receive Date: 20210916
  Receipt Date: 20211025
  Transmission Date: 20220303
  Serious: Yes (Death, Life-Threatening, Hospitalization)
  Sender: FDA-Public Use
  Company Number: US-VIFOR (INTERNATIONAL) INC.-VIT-2021-07410

PATIENT
  Age: 33 Year
  Sex: Male
  Weight: 92.7 kg

DRUGS (1)
  1. MIRCERA [Suspect]
     Active Substance: METHOXY POLYETHYLENE GLYCOL-EPOETIN BETA
     Indication: Anaemia
     Route: 040
     Dates: start: 20210903, end: 20210903

REACTIONS (7)
  - Dizziness [Fatal]
  - Blood pressure decreased [Fatal]
  - Dyspnoea [Fatal]
  - Nausea [Fatal]
  - Unresponsive to stimuli [Fatal]
  - Pulse absent [Fatal]
  - Apnoea [Fatal]

NARRATIVE: CASE EVENT DATE: 20210903
